FAERS Safety Report 10249035 (Version 2)
Quarter: 2014Q3

REPORT INFORMATION
  Report Type: Report from Study
  Country: AU (occurrence: AU)
  Receive Date: 20140620
  Receipt Date: 20140714
  Transmission Date: 20150326
  Serious: Yes (Other)
  Sender: FDA-Public Use
  Company Number: PHHY2014AU076264

PATIENT
  Sex: Female
  Weight: 76 kg

DRUGS (13)
  1. DANAZOL. [Concomitant]
     Active Substance: DANAZOL
     Indication: THROMBOCYTOPENIA
  2. VIDAZA [Concomitant]
     Active Substance: AZACITIDINE
     Dosage: 100 MG, FOR A PERIOD OF 7 DAYS EACH MONTH
  3. PREDNISOLONE. [Concomitant]
     Active Substance: PREDNISOLONE
     Dosage: 25 MG, UNK
  4. AZACITIDINE. [Concomitant]
     Active Substance: AZACITIDINE
     Dosage: UNK UKN, UNK
  5. CARDIZEM [Concomitant]
     Active Substance: DILTIAZEM HYDROCHLORIDE
     Dosage: UNK UKN, UNK
  6. NEXIUM [Concomitant]
     Active Substance: ESOMEPRAZOLE MAGNESIUM
     Dosage: UNK UKN, UNK
  7. DANAZOL. [Concomitant]
     Active Substance: DANAZOL
     Indication: MYELODYSPLASTIC SYNDROME
     Dosage: 200 MG, BID
  8. PREDNISOLONE. [Concomitant]
     Active Substance: PREDNISOLONE
     Dosage: 10 UNK, UNK
  9. VIDAZA [Concomitant]
     Active Substance: AZACITIDINE
     Dosage: UNK UKN, UNK
     Dates: start: 201305
  10. ZOLOFT [Concomitant]
     Active Substance: SERTRALINE HYDROCHLORIDE
     Dosage: UNK UKN, UNK
  11. ACLASTA [Suspect]
     Active Substance: ZOLEDRONIC ACID
     Dosage: 5 MG, UNK
     Route: 042
     Dates: start: 201304
  12. DUATROL [Concomitant]
     Active Substance: ACETAMINOPHEN
     Dosage: UNK UKN, UNK
  13. RENITEC//ENALAPRIL MALEATE [Concomitant]
     Dosage: UNK UKN, UNK

REACTIONS (8)
  - Herpes zoster [Unknown]
  - Contusion [Unknown]
  - Hyperkeratosis [Unknown]
  - Weight increased [Unknown]
  - Constipation [Unknown]
  - Leukaemia [Unknown]
  - Splenomegaly [Unknown]
  - Blood pressure systolic increased [Unknown]
